FAERS Safety Report 14787966 (Version 1)
Quarter: 2018Q2

REPORT INFORMATION
  Report Type: Spontaneous
  Country: US (occurrence: US)
  Receive Date: 20180422
  Receipt Date: 20180422
  Transmission Date: 20180711
  Serious: No
  Sender: FDA-Public Use
  Company Number: US-DUCHESNAY INC.-2018US000600

PATIENT
  Age: 62 Year
  Sex: Female

DRUGS (1)
  1. OSPHENA [Suspect]
     Active Substance: OSPEMIFENE
     Indication: DYSPAREUNIA
     Dosage: 60 MG, DAILY
     Route: 048
     Dates: start: 20171123, end: 20180110

REACTIONS (3)
  - Chest discomfort [Recovered/Resolved]
  - Irritability [Recovered/Resolved]
  - Anxiety [Recovered/Resolved]

NARRATIVE: CASE EVENT DATE: 20171225
